FAERS Safety Report 23034205 (Version 1)
Quarter: 2023Q4

REPORT INFORMATION
  Report Type: Spontaneous
  Country: NL (occurrence: NL)
  Receive Date: 20231005
  Receipt Date: 20231005
  Transmission Date: 20240110
  Serious: Yes (Hospitalization, Other)
  Sender: FDA-Public Use
  Company Number: None

PATIENT

DRUGS (5)
  1. ALBUTEROL [Suspect]
     Active Substance: ALBUTEROL
     Indication: Asthma
     Dosage: 1 DF, BID, IF NECESSARY, 1 DOSE TWICE A DAY
     Route: 065
     Dates: start: 20000101
  2. RESONIUM [Suspect]
     Active Substance: SODIUM POLYSTYRENE SULFONATE
     Indication: Hyperkalaemia
     Dosage: 15 G, QOD
     Route: 065
     Dates: start: 20230818, end: 20230904
  3. TIOTROPIUM [Suspect]
     Active Substance: TIOTROPIUM
     Indication: Asthma
     Dosage: 2 DF, QD
     Route: 055
     Dates: start: 20000101
  4. BUMETANIDE [Suspect]
     Active Substance: BUMETANIDE
     Indication: Oedema
     Dosage: 1 MG, QOD
     Route: 065
     Dates: start: 20230715, end: 20230904
  5. SODIUM BICARBONATE [Concomitant]
     Active Substance: SODIUM BICARBONATE
     Indication: Product used for unknown indication
     Dosage: UNK
     Route: 065

REACTIONS (2)
  - Metabolic alkalosis [Recovered/Resolved]
  - Hypokalaemia [Recovered/Resolved]
